FAERS Safety Report 10678345 (Version 1)
Quarter: 2014Q4

REPORT INFORMATION
  Report Type: Spontaneous
  Country: FR (occurrence: FR)
  Receive Date: 20141229
  Receipt Date: 20141229
  Transmission Date: 20150529
  Serious: Yes (Other)
  Sender: FDA-Public Use
  Company Number: FR-JNJFOC-20141215355

PATIENT
  Age: 57 Year
  Sex: Male

DRUGS (7)
  1. METOJECT [Suspect]
     Active Substance: METHOTREXATE SODIUM
     Indication: PRODUCT USED FOR UNKNOWN INDICATION
     Route: 051
  2. METFORMIN [Concomitant]
     Active Substance: METFORMIN HYDROCHLORIDE
     Route: 065
  3. SIMVASTATIN. [Concomitant]
     Active Substance: SIMVASTATIN
     Route: 065
  4. ALLOPURINOL. [Concomitant]
     Active Substance: ALLOPURINOL
     Route: 065
  5. SIMPONI [Suspect]
     Active Substance: GOLIMUMAB
     Indication: ANKYLOSING SPONDYLITIS
     Dosage: 1 DF PER COURSE
     Route: 058
     Dates: start: 201311, end: 20140815
  6. DIAMICRON [Concomitant]
     Active Substance: GLICLAZIDE
     Route: 065
  7. NISIS [Concomitant]
     Active Substance: VALSARTAN
     Route: 065

REACTIONS (4)
  - Nail discolouration [Not Recovered/Not Resolved]
  - Palmar erythema [Not Recovered/Not Resolved]
  - Rash papular [Not Recovered/Not Resolved]
  - Chillblains [Not Recovered/Not Resolved]

NARRATIVE: CASE EVENT DATE: 201410
